FAERS Safety Report 13737264 (Version 2)
Quarter: 2017Q3

REPORT INFORMATION
  Report Type: Spontaneous
  Country: FI (occurrence: FI)
  Receive Date: 20170710
  Receipt Date: 20170717
  Transmission Date: 20171127
  Serious: Yes (Hospitalization, Other)
  Sender: FDA-Public Use
  Company Number: FI-PFIZER INC-2017292967

PATIENT
  Age: 39 Year
  Sex: Female

DRUGS (9)
  1. PANADOL FORTE [Concomitant]
     Active Substance: ACETAMINOPHEN\CAFFEINE
     Dosage: UNK
     Route: 048
  2. HEINIX [Concomitant]
     Active Substance: CETIRIZINE HYDROCHLORIDE
     Dosage: 10 MG, UNK
     Route: 048
  3. PEGORION [Concomitant]
     Active Substance: POLYETHYLENE GLYCOL 4000
     Indication: CONSTIPATION
     Dosage: 1 DF, UNK
     Route: 048
  4. GRANISETRON STADA [Concomitant]
     Indication: NAUSEA
     Dosage: 1 MG, UNK
     Route: 048
  5. ESOMEPRAZOL SANDOZ [Concomitant]
     Indication: DYSPEPSIA
     Dosage: 20 MG, UNK
     Route: 048
  6. DOCETAXEL. [Suspect]
     Active Substance: DOCETAXEL
     Indication: BREAST CANCER FEMALE
     Dosage: 135 (DOSE UNIT NOT REPORTED)
     Route: 042
     Dates: start: 20170403, end: 20170529
  7. LONQUEX [Concomitant]
     Active Substance: LIPEGFILGRASTIM
     Indication: COLONY STIMULATING FACTOR THERAPY
     Dosage: 6 MG, UNK
     Route: 058
  8. ALVESCO [Concomitant]
     Active Substance: CICLESONIDE
     Dosage: 80 UG, 1X/DAY
     Route: 055
  9. PRIMPERAN [Concomitant]
     Active Substance: METOCLOPRAMIDE HYDROCHLORIDE
     Indication: NAUSEA
     Dosage: 10 MG, UNK
     Route: 048

REACTIONS (5)
  - Diarrhoea [Unknown]
  - Neutropenic infection [Unknown]
  - Pyrexia [Recovered/Resolved]
  - Constipation [Unknown]
  - Cytopenia [Recovering/Resolving]

NARRATIVE: CASE EVENT DATE: 2017
